FAERS Safety Report 7131566-9 (Version None)
Quarter: 2010Q4

REPORT INFORMATION
  Report Type: 
  Country: None (occurrence: None)
  Receive Date: 20101201
  Receipt Date: 20101123
  Transmission Date: 20110411
  Serious: Yes (Hospitalization)
  Sender: FDA-Public Use
  Company Number: US-ELI_LILLY_AND_COMPANY-US201011006680

PATIENT
  Age: 63 Year
  Sex: Male
  Weight: 107.48 kg

DRUGS (6)
  1. PEMETREXED [Suspect]
     Indication: SARCOMA
     Dosage: 1135 MG, EVERY Q 2 WKS
     Route: 042
     Dates: start: 20101112
  2. DOCETAXEL [Suspect]
     Indication: SARCOMA
     Dosage: 91 MG,  Q 2 WEEKS
     Route: 042
     Dates: start: 20101112
  3. FOLIC ACID [Concomitant]
     Dosage: 400 UG, DAILY (1/D)
     Dates: start: 20101104
  4. VITAMIN B-12 [Concomitant]
     Dosage: 1000 UG, UNK
     Route: 030
  5. LOVENOX [Concomitant]
     Dosage: UNK, DAILY (1/D)
  6. POTASSIUM CHLORIDE [Concomitant]
     Dosage: 20 MEQ, 2/D

REACTIONS (1)
  - PNEUMATOSIS INTESTINALIS [None]
